FAERS Safety Report 8407356 (Version 8)
Quarter: 2013Q3

REPORT INFORMATION
  Report Type: Report from Study
  Country: JP (occurrence: JP)
  Receive Date: 20120215
  Receipt Date: 20130902
  Transmission Date: 20140515
  Serious: Yes (Hospitalization)
  Sender: FDA-Public Use
  Company Number: JP-JNJFOC-20120204802

PATIENT
  Age: 77 Year
  Sex: Male
  Weight: 54 kg

DRUGS (16)
  1. STELARA [Suspect]
     Indication: PSORIASIS
     Route: 058
     Dates: start: 20120126, end: 20120126
  2. STELARA [Suspect]
     Indication: PSORIASIS
     Route: 058
     Dates: start: 20121220, end: 20121227
  3. STELARA [Suspect]
     Indication: PSORIASIS
     Route: 058
     Dates: start: 20130328, end: 20130328
  4. STELARA [Suspect]
     Indication: PSORIASIS
     Route: 058
     Dates: start: 20120927, end: 20120927
  5. STELARA [Suspect]
     Indication: PSORIASIS
     Route: 058
     Dates: start: 20110206
  6. STELARA [Suspect]
     Indication: PSORIASIS
     Route: 058
     Dates: start: 20130620
  7. STELARA [Suspect]
     Indication: PSORIASIS
     Route: 058
     Dates: start: 20120621, end: 20120621
  8. XYZAL [Concomitant]
     Indication: PSORIASIS
     Route: 048
     Dates: start: 20111212
  9. NERISONA [Concomitant]
     Indication: PSORIASIS
     Route: 061
     Dates: start: 20111222, end: 20120204
  10. ANTEBATE [Concomitant]
     Indication: PSORIASIS
     Dates: start: 20111222, end: 20120822
  11. MAINTATE [Concomitant]
     Route: 048
     Dates: start: 20111222, end: 20120215
  12. WARFARIN [Concomitant]
     Indication: CARDIAC FAILURE CHRONIC
     Route: 048
     Dates: start: 20111222, end: 20120328
  13. DIFLAL [Concomitant]
     Indication: PSORIASIS
     Route: 061
     Dates: start: 20120202, end: 20120328
  14. ALLELOCK [Concomitant]
     Indication: PSORIASIS
     Route: 048
     Dates: start: 20120202
  15. PROPADERM [Concomitant]
     Indication: PSORIASIS
     Route: 061
     Dates: start: 20120203
  16. ISCOTIN [Concomitant]
     Indication: PROPHYLAXIS
     Route: 048
     Dates: start: 20120112, end: 20120225

REACTIONS (2)
  - Cardiac failure [Recovered/Resolved]
  - Lung neoplasm [Recovered/Resolved]
